FAERS Safety Report 15985046 (Version 4)
Quarter: 2019Q2

REPORT INFORMATION
  Report Type: Spontaneous
  Country: US (occurrence: US)
  Receive Date: 20190220
  Receipt Date: 20190603
  Transmission Date: 20190711
  Serious: Yes (Hospitalization, Other)
  Sender: FDA-Public Use
  Company Number: US-PFIZER INC-2019073977

PATIENT
  Age: 69 Year
  Sex: Female

DRUGS (2)
  1. XELJANZ [Suspect]
     Active Substance: TOFACITINIB CITRATE
     Dosage: UNK
     Dates: start: 20190423
  2. XELJANZ [Suspect]
     Active Substance: TOFACITINIB CITRATE
     Dosage: 5 MG, UNK
     Dates: start: 201901, end: 2019

REACTIONS (5)
  - Fatigue [Unknown]
  - Pruritus [Unknown]
  - Atrial fibrillation [Unknown]
  - Dyspnoea [Unknown]
  - Nasal congestion [Unknown]

NARRATIVE: CASE EVENT DATE: 201904
